FAERS Safety Report 9227731 (Version 1)
Quarter: 2013Q2

REPORT INFORMATION
  Report Type: Spontaneous
  Country: SE (occurrence: SE)
  Receive Date: 20130412
  Receipt Date: 20130412
  Transmission Date: 20140414
  Serious: Yes (Other)
  Sender: FDA-Public Use
  Company Number: SE-SANOFI-AVENTIS-2013SA036261

PATIENT
  Age: 87 Year
  Sex: Male

DRUGS (11)
  1. ALFUZOSIN HYDROCHLORIDE [Suspect]
     Indication: BENIGN PROSTATIC HYPERPLASIA
     Route: 048
     Dates: start: 20120820, end: 20130116
  2. LEVAXIN [Concomitant]
  3. OMEPRAZOLE [Concomitant]
  4. FELODIPINE [Concomitant]
  5. SIMVASTATIN [Concomitant]
  6. FINASTERIDE [Concomitant]
  7. KALEORID [Concomitant]
  8. FURIX [Concomitant]
  9. SELOKEN ZOC [Concomitant]
  10. IMDUR [Concomitant]
  11. TROMBYL [Concomitant]

REACTIONS (3)
  - Muscle contractions involuntary [Recovered/Resolved]
  - Fatigue [Recovered/Resolved]
  - Dizziness [Recovered/Resolved]
